FAERS Safety Report 18278455 (Version 1)
Quarter: 2020Q3

REPORT INFORMATION
  Report Type: Spontaneous
  Country: JP (occurrence: JP)
  Receive Date: 20200917
  Receipt Date: 20200917
  Transmission Date: 20201103
  Serious: No
  Sender: FDA-Public Use
  Company Number: JP-LUPIN PHARMACEUTICALS INC.-2020-02460

PATIENT
  Age: 67 Year
  Sex: Male

DRUGS (6)
  1. RISPERIDONE. [Concomitant]
     Active Substance: RISPERIDONE
     Dosage: 2.5 MILLIGRAM, QD
     Route: 065
  2. DIVALPROEX [Suspect]
     Active Substance: DIVALPROEX SODIUM
     Indication: BIPOLAR I DISORDER
     Dosage: UNK (PAST TREATMENT)
     Route: 065
  3. DIVALPROEX [Interacting]
     Active Substance: DIVALPROEX SODIUM
     Dosage: 800 MILLIGRAM, QD
     Route: 065
  4. DIVALPROEX [Interacting]
     Active Substance: DIVALPROEX SODIUM
     Dosage: 1000 MILLIGRAM, QD
     Route: 065
  5. EMPAGLIFLOZIN [Interacting]
     Active Substance: EMPAGLIFLOZIN
     Indication: TYPE 2 DIABETES MELLITUS
     Dosage: 10 MILLIGRAM, QD
     Route: 065
  6. RISPERIDONE. [Concomitant]
     Active Substance: RISPERIDONE
     Indication: BIPOLAR I DISORDER
     Dosage: 1 MILLIGRAM, QD
     Route: 065

REACTIONS (5)
  - Weight decreased [Unknown]
  - Toxicity to various agents [Recovering/Resolving]
  - Tremor [Recovering/Resolving]
  - Overdose [Unknown]
  - Drug interaction [Unknown]
